FAERS Safety Report 7282043-6 (Version None)
Quarter: 2011Q1

REPORT INFORMATION
  Report Type: 
  Country: None (occurrence: None)
  Receive Date: 20110208
  Receipt Date: 20110121
  Transmission Date: 20110831
  Serious: Yes (Other)
  Sender: FDA-Public Use
  Company Number: PHHY2010ES89555

PATIENT
  Sex: Male
  Weight: 100 kg

DRUGS (5)
  1. CYCLOPHOSPHAMIDE [Concomitant]
  2. VINCRISTINE [Suspect]
  3. ZARZIO [Suspect]
     Indication: FEBRILE NEUTROPENIA
     Dosage: 30MU/0.5 ML, 30/48 H/8 DAYS
     Route: 058
  4. DOXORUBICIN [Suspect]
  5. PREDNISONE [Suspect]

REACTIONS (8)
  - NEUTROPHIL COUNT DECREASED [None]
  - ANAL ABSCESS [None]
  - FEBRILE NEUTROPENIA [None]
  - AGRANULOCYTOSIS [None]
  - DRUG INEFFECTIVE [None]
  - RESPIRATORY TRACT INFECTION [None]
  - CANDIDIASIS [None]
  - APLASIA [None]
